FAERS Safety Report 7746811-6 (Version None)
Quarter: 2011Q3

REPORT INFORMATION
  Report Type: 
  Country: None (occurrence: None)
  Receive Date: 20110913
  Receipt Date: 20110906
  Transmission Date: 20111222
  Serious: Yes (Hospitalization)
  Sender: FDA-Public Use
  Company Number: CA-AMGEN-CANSP2011032043

PATIENT
  Age: 79 Year
  Sex: Female
  Weight: 45 kg

DRUGS (10)
  1. COD LIVER OIL [Concomitant]
     Dosage: UNK UNK, QD
     Route: 048
  2. VITAMIN D [Concomitant]
     Dosage: 2000 IU, QD
  3. ASPIRIN [Concomitant]
     Dosage: 325 MG, BID
     Route: 048
  4. TYLENOL (CAPLET) [Concomitant]
     Dosage: UNK UNK, PRN
  5. PROLIA [Suspect]
     Indication: OSTEOPOROSIS
     Dosage: 60 MG, Q6MO
     Route: 058
     Dates: start: 20100831, end: 20110308
  6. ASPIRIN [Concomitant]
     Dosage: 325 MG, TID
  7. VITAMIN D [Concomitant]
     Dosage: 1000 IU, BID
     Route: 048
  8. LACTULOSE [Concomitant]
     Dosage: UNK UNK, PRN
  9. NICOTINE [Concomitant]
  10. SEROQUEL [Concomitant]

REACTIONS (6)
  - DYSSTASIA [None]
  - MUSCLE SPASMS [None]
  - ASTHENIA [None]
  - FALL [None]
  - MUSCULOSKELETAL STIFFNESS [None]
  - SYNCOPE [None]
